FAERS Safety Report 16207849 (Version 1)
Quarter: 2019Q2

REPORT INFORMATION
  Report Type: Spontaneous
  Country: US (occurrence: US)
  Receive Date: 20190313
  Receipt Date: 20190313
  Transmission Date: 20190711
  Serious: Yes (Death)
  Sender: FDA-Public Use
  Company Number: None

PATIENT
  Age: 3 Year
  Sex: Male

DRUGS (1)
  1. IRINOTECAN INJ 40MG/2ML [Suspect]
     Active Substance: IRINOTECAN
     Dates: start: 20190117, end: 20190213

REACTIONS (1)
  - Death [None]

NARRATIVE: CASE EVENT DATE: 20190213
